FAERS Safety Report 10020098 (Version 1)
Quarter: 2014Q1

REPORT INFORMATION
  Report Type: Spontaneous
  Country: US (occurrence: US)
  Receive Date: 20140318
  Receipt Date: 20140318
  Transmission Date: 20141002
  Serious: No
  Sender: FDA-Public Use
  Company Number: US-009507513-1403USA006948

PATIENT
  Sex: Male

DRUGS (1)
  1. ZETIA [Suspect]
     Dosage: UNK
     Route: 048
     Dates: start: 201312

REACTIONS (7)
  - Dyspnoea [Unknown]
  - Increased upper airway secretion [Unknown]
  - Pruritus generalised [Unknown]
  - Dyspepsia [Unknown]
  - Depression [Unknown]
  - Cough [Unknown]
  - Fatigue [Unknown]
